FAERS Safety Report 16965440 (Version 1)
Quarter: 2019Q4

REPORT INFORMATION
  Report Type: Spontaneous
  Country: DK (occurrence: DK)
  Receive Date: 20191028
  Receipt Date: 20191028
  Transmission Date: 20200122
  Serious: Yes (Hospitalization)
  Sender: FDA-Public Use
  Company Number: DK-TEVA-2019-DK-1127658

PATIENT
  Age: 44 Year
  Sex: Male

DRUGS (3)
  1. OXALIPLATIN. [Suspect]
     Active Substance: OXALIPLATIN
     Indication: PANCREATIC CARCINOMA
     Dosage: STRENGTH: 5 MG/ML. DOSE: UNKNOWN.
     Route: 042
     Dates: start: 20161221
  2. CAPECITABINE. [Suspect]
     Active Substance: CAPECITABINE
     Indication: PANCREATIC CARCINOMA
     Dosage: STRENGTH: UNKNOWN. DOSE: UNKNOWN.
     Route: 048
     Dates: start: 20161215
  3. GEMCITABINE HYDROCHLORIDE. [Suspect]
     Active Substance: GEMCITABINE HYDROCHLORIDE
     Indication: PANCREATIC CARCINOMA
     Dosage: STRENGTH: 1 G. DOSE: ALTERNATING.
     Route: 042
     Dates: start: 20161215

REACTIONS (6)
  - Dizziness [Unknown]
  - Pericardial effusion [Recovered/Resolved]
  - Oedema peripheral [Unknown]
  - Renal impairment [Unknown]
  - Hypertension [Not Recovered/Not Resolved]
  - Dyspnoea [Recovered/Resolved]

NARRATIVE: CASE EVENT DATE: 201709
